FAERS Safety Report 19205829 (Version 1)
Quarter: 2021Q2

REPORT INFORMATION
  Report Type: Spontaneous
  Country: US (occurrence: US)
  Receive Date: 20210503
  Receipt Date: 20210503
  Transmission Date: 20210717
  Serious: No
  Sender: FDA-Public Use
  Company Number: US-FARMAPROD-202103-0429

PATIENT
  Sex: Female

DRUGS (11)
  1. OXERVATE [Suspect]
     Active Substance: CENEGERMIN-BKBJ
     Indication: ULCERATIVE KERATITIS
  2. XGEVA [Concomitant]
     Active Substance: DENOSUMAB
     Dosage: 120 MG/1.7 VIAL
  3. OXERVATE [Suspect]
     Active Substance: CENEGERMIN-BKBJ
     Indication: NEUROTROPHIC KERATOPATHY
     Route: 047
     Dates: start: 20201118
  4. OXERVATE [Suspect]
     Active Substance: CENEGERMIN-BKBJ
     Indication: HYPOAESTHESIA EYE
  5. MAGNESIUM [Concomitant]
     Active Substance: MAGNESIUM
  6. VITAMIN D3/ALOE [Concomitant]
     Dosage: 120?1000 MG
  7. VITAMINE C [Concomitant]
     Active Substance: ASCORBIC ACID
  8. HERCEPTIN [Concomitant]
     Active Substance: TRASTUZUMAB
     Dosage: VIAL
  9. CALCIUM/VITAMINA D3 [Concomitant]
     Dosage: 600 MG?500 MG EXTENDED RELEASE TABLET
  10. FASLODEX [Concomitant]
     Active Substance: FULVESTRANT
     Dosage: 250 MG/5 ML SYRINGE
  11. ARMOUR THYROID [Concomitant]
     Active Substance: THYROID, PORCINE

REACTIONS (1)
  - Eye irritation [Unknown]
